FAERS Safety Report 4618069-8 (Version None)
Quarter: 2005Q2

REPORT INFORMATION
  Report Type: 
  Country: None (occurrence: None)
  Receive Date: 20050316
  Receipt Date: 20050128
  Transmission Date: 20051028
  Serious: Yes (Other)
  Sender: FDA-Public Use
  Company Number: S05-USA-00475-01

PATIENT
  Age: 43 Year
  Sex: Female

DRUGS (3)
  1. LEXAPRO [Suspect]
     Indication: DEPRESSION
     Dosage: 10 MG QD PO
     Route: 048
     Dates: start: 20040801, end: 20050123
  2. ZOCOR [Concomitant]
  3. ZETIA [Concomitant]

REACTIONS (2)
  - CRYING [None]
  - SUICIDAL IDEATION [None]
